FAERS Safety Report 20590526 (Version 2)
Quarter: 2022Q1

REPORT INFORMATION
  Report Type: Report from Study
  Country: DE (occurrence: DE)
  Receive Date: 20220314
  Receipt Date: 20220329
  Transmission Date: 20220423
  Serious: Yes (Life-Threatening, Hospitalization, Other)
  Sender: FDA-Public Use
  Company Number: DE-002147023-PHHY2019DE061810

PATIENT
  Age: 69 Year
  Sex: Female
  Weight: 62 kg

DRUGS (8)
  1. LETROZOLE [Suspect]
     Active Substance: LETROZOLE
     Indication: Breast cancer metastatic
     Dosage: 2.5 MILLIGRAM, QD, (2.5 MG, QD)
     Route: 048
     Dates: start: 20190105
  2. KISQALI [Suspect]
     Active Substance: RIBOCICLIB
     Indication: Breast cancer metastatic
     Dosage: 400 MILLIGRAM, QD, (400 MG, QD (SCHEMA 21 DAYS OF INTAKE, 7 DAYS PAUSE))
     Route: 048
     Dates: start: 20210424, end: 20220213
  3. KISQALI [Suspect]
     Active Substance: RIBOCICLIB
     Dosage: 400 MILLIGRAM, QD, (400 MILLIGRAM, QD (PER DAY (21 DAYS OF INTAKE, 7 DAYS PAUSE))
     Route: 048
     Dates: start: 20190228, end: 20190522
  4. KISQALI [Suspect]
     Active Substance: RIBOCICLIB
     Dosage: 600 MILLIGRAM, QD, (600 MG, QD (PER DAY (21 DAYS OF INTAKE, 7 DAYS PAUSE))
     Route: 048
     Dates: start: 20190105, end: 20190227
  5. KISQALI [Suspect]
     Active Substance: RIBOCICLIB
     Dosage: 400 MILLIGRAM, QD, (400 MG, QD (PER DAY (21 DAYS OF INTAKE, 7 DAYS PAUSE))
     Route: 048
     Dates: start: 20190912, end: 20200519
  6. KISQALI [Suspect]
     Active Substance: RIBOCICLIB
     Dosage: 200 MILLIGRAM, QD, (200 MG, QD PER DAY (21 DAYS OF INTAKE, 7 DAYS PAUSE))
     Route: 048
     Dates: start: 20190523, end: 20190911
  7. KISQALI [Suspect]
     Active Substance: RIBOCICLIB
     Dosage: 400 MILLIGRAM, QD, (400 MG, QD (SCHEMA 21 DAYS OF INTAKE, 7 DAYS PAUSE))
     Route: 048
     Dates: start: 20200527, end: 20210331
  8. HYDROCHLOROTHIAZIDE\RAMIPRIL [Concomitant]
     Active Substance: HYDROCHLOROTHIAZIDE\RAMIPRIL
     Indication: Hypertension
     Dosage: 1 DOSAGE FORM, QD, (1 DF QD (RAMIPRIL 1X5/ HCT 25) (ONCE IN THE MORNING))
     Route: 048
     Dates: start: 201103, end: 201903

REACTIONS (4)
  - Leukopenia [Recovered/Resolved]
  - Syncope [Recovered/Resolved]
  - Pneumonia [Recovered/Resolved]
  - Neutropenia [Recovered/Resolved]

NARRATIVE: CASE EVENT DATE: 20190220
